FAERS Safety Report 7688927-9 (Version None)
Quarter: 2011Q3

REPORT INFORMATION
  Report Type: 
  Country: None (occurrence: None)
  Receive Date: 20110817
  Receipt Date: 20110813
  Transmission Date: 20111222
  Serious: Yes (Life-Threatening, Other)
  Sender: FDA-Public Use
  Company Number: JP-PFIZER INC-2011187241

PATIENT
  Age: 74 Year
  Sex: Male

DRUGS (6)
  1. DIGOXIN [Concomitant]
  2. HYDRALAZINE HYDROCHLORIDE [Concomitant]
  3. PROCAINAMIDE [Concomitant]
     Dosage: UNK G, UNK
  4. FUROSEMIDE [Concomitant]
  5. NORPACE [Suspect]
     Dosage: 450 MG, SINGLE
     Route: 048
  6. SPIRONOLACTONE [Concomitant]

REACTIONS (5)
  - HYPOTENSION [None]
  - LACTIC ACIDOSIS [None]
  - CONVULSION [None]
  - HYPOGLYCAEMIA [None]
  - CARDIO-RESPIRATORY ARREST [None]
